FAERS Safety Report 4784962-9 (Version None)
Quarter: 2005Q3

REPORT INFORMATION
  Report Type: 
  Country: None (occurrence: None)
  Receive Date: 20050930
  Receipt Date: 20050923
  Transmission Date: 20060218
  Serious: Yes (Hospitalization)
  Sender: FDA-Public Use
  Company Number: PHEH2005US10610

PATIENT
  Age: 60 Year
  Sex: Female

DRUGS (8)
  1. FAMVIR [Suspect]
     Indication: HERPES ZOSTER
     Dosage: 500 MG, TID
     Route: 048
     Dates: start: 20050904, end: 20050919
  2. ENALAPRIL [Concomitant]
     Dates: end: 20050922
  3. GLUCOTROL [Concomitant]
  4. GLUCOPHAGE [Concomitant]
  5. AVANDIA [Concomitant]
  6. PROTONIX [Concomitant]
  7. LEVOTHYROXINE [Concomitant]
  8. WARFARIN SODIUM [Concomitant]

REACTIONS (4)
  - EYELID OEDEMA [None]
  - PHARYNGEAL OEDEMA [None]
  - SPEECH DISORDER [None]
  - SWELLING FACE [None]
